FAERS Safety Report 9201680 (Version 3)
Quarter: 2013Q2

REPORT INFORMATION
  Report Type: Spontaneous
  Country: JP (occurrence: None)
  Receive Date: 20130327
  Receipt Date: 20130416
  Transmission Date: 20140414
  Serious: Yes (Hospitalization, Other)
  Sender: FDA-Public Use
  Company Number: ADR-2013-00508

PATIENT
  Age: 50 Year
  Sex: Male

DRUGS (1)
  1. GABALON [Suspect]
     Indication: SPINOCEREBELLAR DISORDER

REACTIONS (2)
  - Cholelithiasis [None]
  - Cholecystitis [None]
